FAERS Safety Report 5442380-4 (Version None)
Quarter: 2007Q3

REPORT INFORMATION
  Report Type: 
  Country: None (occurrence: None)
  Receive Date: 20070904
  Receipt Date: 20070823
  Transmission Date: 20080115
  Serious: Yes (Other)
  Sender: FDA-Public Use
  Company Number: US-PFIZER INC-2007058060

PATIENT
  Sex: Female
  Weight: 61.2 kg

DRUGS (4)
  1. CHANTIX [Suspect]
     Indication: EX-SMOKER
  2. ENALAPRIL [Concomitant]
  3. PREMPRO [Concomitant]
  4. VITAMINS [Concomitant]

REACTIONS (9)
  - AGEUSIA [None]
  - BURNING SENSATION [None]
  - DYSGEUSIA [None]
  - HERPES ZOSTER [None]
  - HYPOAESTHESIA [None]
  - HYPOAESTHESIA FACIAL [None]
  - INTENTIONAL DRUG MISUSE [None]
  - NERVOUS SYSTEM DISORDER [None]
  - UNEVALUABLE EVENT [None]
